FAERS Safety Report 7833229-0 (Version None)
Quarter: 2011Q4

REPORT INFORMATION
  Report Type: 
  Country: None (occurrence: None)
  Receive Date: 20111024
  Receipt Date: 20111019
  Transmission Date: 20120403
  Serious: Yes (Hospitalization, Other)
  Sender: FDA-Public Use
  Company Number: GB-PFIZER INC-2011242042

PATIENT
  Age: 38 Year
  Sex: Male

DRUGS (2)
  1. PHENYTOIN [Suspect]
  2. STELARA [Interacting]
     Indication: PSORIASIS
     Dosage: 45 MG, UNK
     Route: 058
     Dates: start: 20110101

REACTIONS (3)
  - DRUG LEVEL INCREASED [None]
  - DRUG INTERACTION [None]
  - ATAXIA [None]
